FAERS Safety Report 9237172 (Version 1)
Quarter: 2013Q2

REPORT INFORMATION
  Report Type: Spontaneous
  Country: US (occurrence: US)
  Receive Date: 20130417
  Receipt Date: 20130417
  Transmission Date: 20140414
  Serious: Yes (Other)
  Sender: FDA-Public Use
  Company Number: US-ASTRAZENECA-2013SE23031

PATIENT
  Age: 48 Year
  Sex: Male
  Weight: 99.3 kg

DRUGS (12)
  1. ATENOLOL [Suspect]
     Indication: CARDIAC DISORDER
     Route: 048
  2. LISINOPRIL [Interacting]
     Indication: CARDIAC DISORDER
     Route: 048
  3. METFORMIN [Interacting]
     Indication: DIABETES MELLITUS
     Route: 048
  4. OMEPRAZOLE [Interacting]
     Indication: GASTROINTESTINAL DISORDER
     Route: 048
  5. NIFEDIPINE [Interacting]
     Indication: CARDIAC DISORDER
     Route: 065
  6. CHANTIX [Interacting]
     Indication: SMOKING CESSATION THERAPY
     Route: 048
     Dates: end: 2009
  7. NITROGLYCERIN [Interacting]
     Indication: CHEST PAIN
     Route: 065
  8. FLUOXETINE [Interacting]
     Indication: NERVOUS SYSTEM DISORDER
     Route: 065
  9. LITHIUM [Interacting]
     Indication: NERVOUS SYSTEM DISORDER
     Route: 048
  10. HALOPERIDOL [Interacting]
     Indication: NERVOUS SYSTEM DISORDER
     Route: 065
  11. LOVASTATIN [Interacting]
     Indication: CARDIAC DISORDER
     Route: 065
  12. GEMFIBROZIL [Interacting]
     Route: 065

REACTIONS (10)
  - Drug interaction [Unknown]
  - Aggression [Recovering/Resolving]
  - Loss of consciousness [Unknown]
  - Chest pain [Recovering/Resolving]
  - Mood swings [Recovering/Resolving]
  - Insomnia [Recovering/Resolving]
  - Abnormal behaviour [Recovering/Resolving]
  - Aggression [Recovering/Resolving]
  - Disturbance in attention [Recovering/Resolving]
  - Off label use [Unknown]
